FAERS Safety Report 5065495-1 (Version None)
Quarter: 2006Q3

REPORT INFORMATION
  Report Type: 
  Country: None (occurrence: None)
  Receive Date: 20060731
  Receipt Date: 20060720
  Transmission Date: 20061208
  Serious: Yes (Other)
  Sender: FDA-Public Use
  Company Number: PHHO2006CA11909

PATIENT

DRUGS (3)
  1. ZOLEDRONIC ACID [Suspect]
     Indication: OSTEOPOROSIS
     Dosage: 4 MG EVERY 3 MONTHS
  2. VITAMIN D [Concomitant]
  3. CALCIUM GLUCONATE [Concomitant]

REACTIONS (1)
  - OSTEONECROSIS [None]
